FAERS Safety Report 5043802-3 (Version None)
Quarter: 2006Q2

REPORT INFORMATION
  Report Type: 
  Country: None (occurrence: None)
  Receive Date: 20060601
  Receipt Date: 20060222
  Transmission Date: 20061013
  Serious: No
  Sender: FDA-Public Use
  Company Number: US200602004562

PATIENT
  Sex: Female

DRUGS (3)
  1. CYMBALTA [Suspect]
     Indication: ATTENTION DEFICIT/HYPERACTIVITY DISORDER
     Dosage: 60 MG, ORAL
     Route: 048
     Dates: start: 20060201
  2. CONCERTA [Concomitant]
  3. XANAX /USA/(ALPRAZOLAM) [Concomitant]

REACTIONS (4)
  - AGGRESSION [None]
  - CRYING [None]
  - DEPRESSION [None]
  - SEXUAL DYSFUNCTION [None]
